FAERS Safety Report 7164132-X (Version None)
Quarter: 2010Q4

REPORT INFORMATION
  Report Type: 
  Country: None (occurrence: None)
  Receive Date: 20101215
  Receipt Date: 20101209
  Transmission Date: 20110411
  Serious: Yes (Other)
  Sender: FDA-Public Use
  Company Number: BR-PFIZER INC-2010168180

PATIENT
  Sex: Female
  Weight: 38 kg

DRUGS (1)
  1. CHAMPIX [Suspect]
     Indication: TOBACCO USER
     Dosage: UNK
     Route: 048
     Dates: start: 20101201

REACTIONS (7)
  - BLOOD PRESSURE DECREASED [None]
  - DIZZINESS [None]
  - HEADACHE [None]
  - NAUSEA [None]
  - PRESYNCOPE [None]
  - TREMOR [None]
  - VOMITING [None]
